FAERS Safety Report 6097057-1 (Version None)
Quarter: 2009Q1

REPORT INFORMATION
  Report Type: 
  Country: None (occurrence: None)
  Receive Date: 20090227
  Receipt Date: 20090223
  Transmission Date: 20090719
  Serious: Yes (Other)
  Sender: FDA-Public Use
  Company Number: PHHY2008DE08551

PATIENT
  Sex: Male

DRUGS (2)
  1. EXJADE [Suspect]
     Indication: HAEMOSIDEROSIS
     Dosage: 20 MG/KG, UNK
     Route: 048
     Dates: start: 20070321, end: 20070502
  2. EXJADE [Suspect]
     Dosage: 30 MG/KG, UNK
     Route: 048
     Dates: start: 20070503, end: 20080130

REACTIONS (4)
  - BLINDNESS [None]
  - DERMATITIS ALLERGIC [None]
  - DIARRHOEA [None]
  - DYSPNOEA EXERTIONAL [None]
